FAERS Safety Report 14789513 (Version 1)
Quarter: 2018Q2

REPORT INFORMATION
  Report Type: Spontaneous
  Country: US (occurrence: US)
  Receive Date: 20180423
  Receipt Date: 20180423
  Transmission Date: 20180711
  Serious: No
  Sender: FDA-Public Use
  Company Number: US-TEVA-775246ACC

PATIENT
  Sex: Female
  Weight: 86.26 kg

DRUGS (1)
  1. ACICLOVIR [Suspect]
     Active Substance: ACYCLOVIR
     Indication: FACIAL PARALYSIS
     Dosage: 2400 MILLIGRAM DAILY;
     Route: 048
     Dates: start: 20170415

REACTIONS (1)
  - Blood glucose increased [Recovered/Resolved]
